FAERS Safety Report 12844920 (Version 1)
Quarter: 2016Q4

REPORT INFORMATION
  Report Type: Spontaneous
  Country: US (occurrence: US)
  Receive Date: 20161013
  Receipt Date: 20161013
  Transmission Date: 20170207
  Serious: Yes (Death, Hospitalization)
  Sender: FDA-Public Use
  Company Number: US-INGENUS PHARMACEUTICALS NJ, LLC-ING201609-000064

PATIENT
  Age: 75 Year
  Sex: Female

DRUGS (1)
  1. CARISOPRODOL AND ASPIRIN [Suspect]
     Active Substance: ASPIRIN\CARISOPRODOL

REACTIONS (3)
  - Ischaemic stroke [Unknown]
  - Subdural haematoma [Unknown]
  - Death [Fatal]
